FAERS Safety Report 16864836 (Version 1)
Quarter: 2019Q3

REPORT INFORMATION
  Report Type: Report from Study
  Country: PA (occurrence: PA)
  Receive Date: 20190929
  Receipt Date: 20190929
  Transmission Date: 20191005
  Serious: Yes (Hospitalization, Other)
  Sender: FDA-Public Use
  Company Number: PHHY2018PA119570

PATIENT
  Age: 38 Year
  Sex: Male

DRUGS (1)
  1. GILENYA [Suspect]
     Active Substance: FINGOLIMOD HYDROCHLORIDE
     Indication: PRODUCT USED FOR UNKNOWN INDICATION
     Dosage: 0.5 MG, UNK
     Route: 065

REACTIONS (10)
  - Disease recurrence [Unknown]
  - Feeling abnormal [Unknown]
  - Stress [Unknown]
  - Dizziness [Unknown]
  - Vomiting [Unknown]
  - Speech disorder [Unknown]
  - Malaise [Unknown]
  - Neck pain [Unknown]
  - Dyskinesia [Unknown]
  - Discomfort [Unknown]
